FAERS Safety Report 8539459-7 (Version None)
Quarter: 2012Q3

REPORT INFORMATION
  Report Type: 
  Country: None (occurrence: None)
  Receive Date: 20120726
  Receipt Date: 20120716
  Transmission Date: 20120928
  Serious: Yes (Life-Threatening, Hospitalization, Other)
  Sender: FDA-Public Use
  Company Number: FR-009507513-1006FRA00034

PATIENT

DRUGS (8)
  1. METFORMIN HYDROCHLORIDE [Concomitant]
     Indication: TYPE 2 DIABETES MELLITUS
     Dosage: 1000 MG-50
     Route: 048
     Dates: start: 20110610
  2. SITAGLIPTIN PHOSPHATE [Suspect]
     Indication: TYPE 2 DIABETES MELLITUS
     Dosage: 100 MG, QD
     Route: 048
     Dates: start: 20091229, end: 20100226
  3. GLUCOPHAGE [Concomitant]
     Indication: TYPE 2 DIABETES MELLITUS
     Dosage: 1000 MG, BID
     Route: 048
     Dates: start: 20040310, end: 20110610
  4. DIAMICRON [Concomitant]
     Indication: TYPE 2 DIABETES MELLITUS
     Dosage: 30 MG, QD
     Route: 048
     Dates: start: 20050912
  5. VALSARTAN  AND HYDROCHLOROTHIAZIDE [Concomitant]
     Indication: HYPERTENSION
     Dosage: UNK
     Dates: start: 20070305, end: 20110512
  6. FELODIPINE [Concomitant]
     Indication: HYPERTENSION
     Dosage: UNK
     Dates: start: 20011031, end: 20100514
  7. SPIRIVA [Concomitant]
     Indication: CHRONIC OBSTRUCTIVE PULMONARY DISEASE
     Dosage: UNK
  8. ASPIRIN [Concomitant]
     Indication: ANGINA PECTORIS
     Dosage: UNK
     Dates: start: 20050506, end: 20100514

REACTIONS (3)
  - HYPOGLYCAEMIA [None]
  - MYOCARDIAL INFARCTION [None]
  - ANGINA PECTORIS [None]
